FAERS Safety Report 6706836-6 (Version None)
Quarter: 2010Q2

REPORT INFORMATION
  Report Type: 
  Country: None (occurrence: None)
  Receive Date: 20100503
  Receipt Date: 20100428
  Transmission Date: 20101027
  Serious: Yes (Death)
  Sender: FDA-Public Use
  Company Number: JP-ASTRAZENECA-2010SE01697

PATIENT
  Age: 75 Year
  Sex: Female
  Weight: 50 kg

DRUGS (3)
  1. IRESSA [Suspect]
     Indication: LUNG ADENOCARCINOMA
     Route: 048
     Dates: start: 20051013, end: 20060131
  2. IRESSA [Suspect]
     Route: 048
     Dates: start: 20070828, end: 20080422
  3. IRESSA [Suspect]
     Route: 048
     Dates: start: 20090828, end: 20091222

REACTIONS (1)
  - LUNG DISORDER [None]
